FAERS Safety Report 10094421 (Version 2)
Quarter: 2014Q2

REPORT INFORMATION
  Report Type: Spontaneous
  Country: US (occurrence: US)
  Receive Date: 20140422
  Receipt Date: 20140512
  Transmission Date: 20141212
  Serious: No
  Sender: FDA-Public Use
  Company Number: US-JNJFOC-20140318997

PATIENT
  Age: 43 Year
  Sex: Male
  Weight: 72.58 kg

DRUGS (6)
  1. INVEGA [Suspect]
     Indication: DEPRESSION
     Dosage: ONE IN THE MORNING AND ONE IN THE NIGHT
     Route: 048
     Dates: start: 2012
  2. INVEGA [Suspect]
     Indication: ANXIETY
     Dosage: ONE IN THE MORNING AND ONE IN THE NIGHT
     Route: 048
     Dates: start: 2012
  3. CLONAZEPAM [Concomitant]
     Indication: DEPRESSION
     Route: 048
     Dates: start: 2012
  4. CLONAZEPAM [Concomitant]
     Indication: ANXIETY
     Route: 048
     Dates: start: 2012
  5. PAROXETINE [Concomitant]
     Indication: DEPRESSION
     Route: 048
     Dates: start: 2012
  6. PAROXETINE [Concomitant]
     Indication: ANXIETY
     Route: 048
     Dates: start: 2012

REACTIONS (4)
  - Drug prescribing error [Unknown]
  - Inappropriate schedule of drug administration [Unknown]
  - Drug dose omission [Not Recovered/Not Resolved]
  - Off label use [Unknown]
